FAERS Safety Report 24930168 (Version 2)
Quarter: 2025Q1

REPORT INFORMATION
  Report Type: Spontaneous
  Country: US (occurrence: US)
  Receive Date: 20250205
  Receipt Date: 20250305
  Transmission Date: 20250409
  Serious: No
  Sender: ADMA BIOLOGICS
  Company Number: US-ADMA BIOLOGICS INC.-US-2025ADM000026

PATIENT
  Age: 75 Year

DRUGS (2)
  1. BIVIGAM [Suspect]
     Active Substance: HUMAN IMMUNOGLOBULIN G
     Indication: Pemphigoid
     Route: 042
     Dates: start: 20250121
  2. BIVIGAM [Suspect]
     Active Substance: HUMAN IMMUNOGLOBULIN G
     Route: 042
     Dates: start: 20240102

REACTIONS (6)
  - Rash [Recovered/Resolved]
  - Lip swelling [Unknown]
  - Swelling face [Unknown]
  - Abdominal pain upper [Recovered/Resolved]
  - Suspected product quality issue [Unknown]
  - Off label use [Unknown]

NARRATIVE: CASE EVENT DATE: 20250121
